FAERS Safety Report 17374518 (Version 1)
Quarter: 2020Q1

REPORT INFORMATION
  Report Type: Report from Study
  Country: MX (occurrence: MX)
  Receive Date: 20200205
  Receipt Date: 20200205
  Transmission Date: 20200409
  Serious: Yes (Other)
  Sender: FDA-Public Use
  Company Number: NVSC2020MX026055

PATIENT
  Sex: Male
  Weight: 83 kg

DRUGS (1)
  1. ENTRESTO [Suspect]
     Active Substance: SACUBITRIL\VALSARTAN
     Indication: CARDIAC DISORDER
     Dosage: 0.5 DF,(100MG) BID
     Route: 048
     Dates: start: 2017

REACTIONS (7)
  - Disease recurrence [Recovered/Resolved with Sequelae]
  - Product use in unapproved indication [Unknown]
  - Cardiac failure [Unknown]
  - Dyspnoea [Unknown]
  - Fatigue [Unknown]
  - Discomfort [Recovered/Resolved with Sequelae]
  - Product prescribing error [Unknown]
